FAERS Safety Report 20983184 (Version 1)
Quarter: 2022Q2

REPORT INFORMATION
  Report Type: Spontaneous
  Country: US (occurrence: US)
  Receive Date: 20220620
  Receipt Date: 20220620
  Transmission Date: 20220721
  Serious: Yes (Other)
  Sender: FDA-Public Use
  Company Number: US-AMERICAN REGENT INC-2022001706

PATIENT
  Age: 14 Year
  Sex: Female
  Weight: 52.154 kg

DRUGS (2)
  1. FERRIC CARBOXYMALTOSE [Suspect]
     Active Substance: FERRIC CARBOXYMALTOSE
     Indication: Iron deficiency anaemia
     Dosage: 750 MILLIGRAM IN 250 ML OF NS
     Route: 042
     Dates: start: 20220606, end: 20220606
  2. FERRIC CARBOXYMALTOSE [Suspect]
     Active Substance: FERRIC CARBOXYMALTOSE
     Dosage: 750 MILLIGRAM IN 250 ML OF NS
     Route: 042
     Dates: start: 20220614, end: 20220614

REACTIONS (6)
  - Vision blurred [Unknown]
  - Chest pain [Not Recovered/Not Resolved]
  - Nausea [Unknown]
  - Vomiting [Recovering/Resolving]
  - Headache [Unknown]
  - Dizziness [Unknown]

NARRATIVE: CASE EVENT DATE: 20220607
